FAERS Safety Report 6932287-5 (Version None)
Quarter: 2010Q3

REPORT INFORMATION
  Report Type: 
  Country: None (occurrence: None)
  Receive Date: 20100812
  Receipt Date: 20090216
  Transmission Date: 20110219
  Serious: No
  Sender: FDA-Public Use
  Company Number: 2009-01049

PATIENT
  Sex: Female
  Weight: 61.2356 kg

DRUGS (2)
  1. ZICAM COLD REMEDY NASAL GEL [Suspect]
     Indication: NASOPHARYNGITIS
     Dosage: BID X 2 DOSES
     Dates: start: 20090210
  2. ZIAC [Concomitant]

REACTIONS (2)
  - AGEUSIA [None]
  - ANOSMIA [None]
